FAERS Safety Report 9523162 (Version 1)
Quarter: 2013Q3

REPORT INFORMATION
  Report Type: Report from Study
  Country: BR (occurrence: BR)
  Receive Date: 20130913
  Receipt Date: 20130913
  Transmission Date: 20140515
  Serious: Yes (Hospitalization)
  Sender: FDA-Public Use
  Company Number: BR-GLAXOSMITHKLINE-A1037091A

PATIENT
  Age: 55 Year
  Sex: Female
  Weight: 63 kg

DRUGS (3)
  1. TYKERB [Suspect]
     Indication: BREAST CANCER METASTATIC
     Dosage: 1250MG UNKNOWN
     Route: 048
     Dates: start: 201302, end: 201304
  2. ATENOLOL [Concomitant]
     Dosage: 50MGD PER DAY
     Route: 065
  3. ASA ACETYLSALICYLIC ACID [Concomitant]
     Dosage: 100MGD PER DAY
     Route: 065

REACTIONS (3)
  - Diarrhoea [Recovered/Resolved]
  - Rash [Recovered/Resolved]
  - Disease progression [Recovered/Resolved]
